FAERS Safety Report 12640316 (Version 3)
Quarter: 2016Q3

REPORT INFORMATION
  Report Type: Spontaneous
  Country: US (occurrence: US)
  Receive Date: 20160810
  Receipt Date: 20160824
  Transmission Date: 20161109
  Serious: Yes (Other)
  Sender: FDA-Public Use
  Company Number: US-DRREDDYS-USA/USA/16/0082235

PATIENT
  Age: 78 Year
  Sex: Female

DRUGS (10)
  1. TACROLIMUS. [Suspect]
     Active Substance: TACROLIMUS
     Indication: ECZEMA
     Route: 048
  2. ACITRETIN. [Concomitant]
     Active Substance: ACITRETIN
     Indication: ECZEMA
     Route: 065
  3. NITROGEN. [Concomitant]
     Active Substance: NITROGEN
     Indication: ECZEMA
     Route: 065
  4. TACROLIMUS. [Suspect]
     Active Substance: TACROLIMUS
     Indication: NEURODERMATITIS
     Route: 048
  5. MYCOPHENOLATE MOFETIL. [Concomitant]
     Active Substance: MYCOPHENOLATE MOFETIL
     Indication: ECZEMA
     Route: 065
  6. MYCOPHENOLATE MOFETIL. [Concomitant]
     Active Substance: MYCOPHENOLATE MOFETIL
     Indication: NEURODERMATITIS
  7. LEVOCETIRIZINE [Concomitant]
     Active Substance: LEVOCETIRIZINE
     Indication: NEURODERMATITIS
     Route: 065
  8. NITROGEN. [Concomitant]
     Active Substance: NITROGEN
     Indication: NEURODERMATITIS
  9. ACITRETIN. [Concomitant]
     Active Substance: ACITRETIN
     Indication: NEURODERMATITIS
  10. LEVOCETIRIZINE [Concomitant]
     Active Substance: LEVOCETIRIZINE
     Indication: ECZEMA

REACTIONS (2)
  - Product use issue [Unknown]
  - Squamous cell carcinoma [Unknown]
